FAERS Safety Report 4953983-5 (Version None)
Quarter: 2006Q1

REPORT INFORMATION
  Report Type: 
  Country: None (occurrence: None)
  Receive Date: 20060323
  Receipt Date: 20060323
  Transmission Date: 20060701
  Serious: Yes (Other)
  Sender: FDA-Public Use
  Company Number: None

PATIENT
  Age: 38 Year
  Sex: Female
  Weight: 86.1834 kg

DRUGS (1)
  1. ZICAM SEVERE CONGESTION NASAL [Suspect]
     Indication: NASAL CONGESTION
     Dosage: ONE SQUIRT TO AFFECTED NOSTRIL ONCE EVERY 12 HOUR NASAL
     Route: 045
     Dates: start: 20060310, end: 20060321

REACTIONS (2)
  - CARDIAC FLUTTER [None]
  - DYSPNOEA [None]
